FAERS Safety Report 21773831 (Version 1)
Quarter: 2022Q4

REPORT INFORMATION
  Report Type: Spontaneous
  Country: JP (occurrence: JP)
  Receive Date: 20221223
  Receipt Date: 20221223
  Transmission Date: 20230113
  Serious: Yes (Other)
  Sender: FDA-Public Use
  Company Number: JP-OTSUKA-2022_055347

PATIENT
  Age: 85 Year
  Sex: Female

DRUGS (2)
  1. ICLUSIG [Suspect]
     Active Substance: PONATINIB
     Indication: Chronic myeloid leukaemia
     Dosage: UNK
     Route: 048
     Dates: start: 202209, end: 202212
  2. ICLUSIG [Suspect]
     Active Substance: PONATINIB
     Indication: Blast crisis in myelogenous leukaemia

REACTIONS (2)
  - Blindness [Unknown]
  - Hepatic function abnormal [Unknown]
